FAERS Safety Report 8252806-9 (Version None)
Quarter: 2012Q2

REPORT INFORMATION
  Report Type: 
  Country: None (occurrence: None)
  Receive Date: 20120402
  Receipt Date: 20111221
  Transmission Date: 20120825
  Serious: No
  Sender: FDA-Public Use
  Company Number: US-ABBOTT-11P-163-0886468-00

PATIENT
  Age: 58 Year
  Sex: Male
  Weight: 96.248 kg

DRUGS (10)
  1. ANDROGEL [Suspect]
     Indication: BLOOD TESTOSTERONE DECREASED
     Dosage: PUMP, 1 IN 1 DAY
     Route: 061
     Dates: start: 20111220
  2. VOLTAREN [Concomitant]
     Indication: ARTHRITIS
  3. ANDROGEL [Suspect]
     Dosage: PUMP, 1 IN 1 DAY
     Route: 061
     Dates: start: 20110701, end: 20111220
  4. ANDROGEL [Suspect]
     Indication: BLOOD TESTOSTERONE DECREASED
     Dosage: PUMP, 1 IN 1 DAY
     Route: 061
     Dates: start: 20110517, end: 20110601
  5. ANDROGEL [Suspect]
     Dosage: PUMP, 1 IN 1 DAY
     Route: 061
     Dates: start: 20110601, end: 20110701
  6. CRESTOR [Concomitant]
     Indication: PRODUCT USED FOR UNKNOWN INDICATION
  7. VOLTAREN [Concomitant]
     Indication: SWELLING
  8. PHENOBARBITAL TAB [Concomitant]
     Indication: PRODUCT USED FOR UNKNOWN INDICATION
  9. LISINOPRIL [Concomitant]
     Indication: HYPERTENSION
  10. METFORMIN HCL [Concomitant]
     Indication: PRODUCT USED FOR UNKNOWN INDICATION

REACTIONS (6)
  - THERAPEUTIC RESPONSE UNEXPECTED [None]
  - WEIGHT DECREASED [None]
  - BLOOD PRESSURE DECREASED [None]
  - SEXUAL DYSFUNCTION [None]
  - DRUG INEFFECTIVE [None]
  - BLOOD GLUCOSE DECREASED [None]
